FAERS Safety Report 4498063-0 (Version None)
Quarter: 2004Q4

REPORT INFORMATION
  Report Type: 
  Country: None (occurrence: None)
  Receive Date: 20041109
  Receipt Date: 20041109
  Transmission Date: 20050328
  Serious: Yes (Other)
  Sender: FDA-Public Use
  Company Number: None

PATIENT
  Age: 31 Year
  Sex: Male
  Weight: 83.9154 kg

DRUGS (1)
  1. OMEPRAZOLE [Suspect]
     Indication: OESOPHAGITIS
     Dosage: 1 PILL  ONCE DAILY ORAL
     Route: 048
     Dates: start: 20040801, end: 20040917

REACTIONS (5)
  - ABDOMINAL DISTENSION [None]
  - LIBIDO DECREASED [None]
  - MENTAL IMPAIRMENT [None]
  - MOOD ALTERED [None]
  - WEIGHT INCREASED [None]
